FAERS Safety Report 5100012-9 (Version None)
Quarter: 2006Q3

REPORT INFORMATION
  Report Type: 
  Country: None (occurrence: None)
  Receive Date: 20060906
  Receipt Date: 20060906
  Transmission Date: 20061208
  Serious: Yes (Other)
  Sender: FDA-Public Use
  Company Number: None

PATIENT
  Age: 83 Year
  Sex: Female

DRUGS (6)
  1. FOSAMAX [Suspect]
     Indication: OSTEOPOROSIS
     Dosage: 4 TABLETS BLISTER PACK
     Dates: start: 20060101, end: 20060421
  2. CALCIUM GLUCONATE [Concomitant]
  3. MULTI-VITAMIN [Concomitant]
  4. VIT E [Concomitant]
  5. GINKGO BILOBA [Concomitant]
  6. ASPIRIN [Concomitant]

REACTIONS (7)
  - HEADACHE [None]
  - INFECTION [None]
  - INFLUENZA LIKE ILLNESS [None]
  - LYMPH NODE CALCIFICATION [None]
  - LYMPHADENOPATHY [None]
  - PHARYNGOLARYNGEAL PAIN [None]
  - SWELLING FACE [None]
